FAERS Safety Report 19080599 (Version 1)
Quarter: 2021Q1

REPORT INFORMATION
  Report Type: Spontaneous
  Country: IT (occurrence: IT)
  Receive Date: 20210331
  Receipt Date: 20210331
  Transmission Date: 20210420
  Serious: Yes (Other)
  Sender: FDA-Public Use
  Company Number: NVSC2021IT066233

PATIENT
  Age: 30 Year
  Sex: Male

DRUGS (4)
  1. VALPROIC ACID. [Concomitant]
     Active Substance: VALPROIC ACID
     Indication: TEMPORAL LOBE EPILEPSY
     Dosage: UNK
     Route: 065
  2. LEVETIRACETAM. [Suspect]
     Active Substance: LEVETIRACETAM
     Indication: EPILEPSY
     Dosage: UNK
     Route: 065
  3. TOPIRAMATE. [Concomitant]
     Active Substance: TOPIRAMATE
     Indication: TEMPORAL LOBE EPILEPSY
     Dosage: UNK
     Route: 065
  4. BRIVARACETAM [Suspect]
     Active Substance: BRIVARACETAM
     Indication: EPILEPSY
     Dosage: UNK
     Route: 065

REACTIONS (4)
  - Suspiciousness [Unknown]
  - Paranoia [Unknown]
  - Aggression [Unknown]
  - Drug ineffective [Unknown]
